FAERS Safety Report 14891709 (Version 2)
Quarter: 2018Q2

REPORT INFORMATION
  Report Type: Spontaneous
  Country: IN (occurrence: IN)
  Receive Date: 20180514
  Receipt Date: 20180529
  Transmission Date: 20180711
  Serious: Yes (Death, Life-Threatening, Hospitalization, Other)
  Sender: FDA-Public Use
  Company Number: IN-SA-2018SA130296

PATIENT
  Age: 25 Year
  Sex: Male
  Weight: 45 kg

DRUGS (14)
  1. ETHAMBUTOL [Suspect]
     Active Substance: ETHAMBUTOL HYDROCHLORIDE
     Dosage: UNK UNK,UNK
     Route: 065
  2. RABEPRAZOLE [Concomitant]
     Active Substance: RABEPRAZOLE
     Dosage: 20 MG,UNK
     Route: 065
  3. RIFAMPICIN [Suspect]
     Active Substance: RIFAMPIN
     Indication: TUBERCULOSIS
     Dosage: UNK UNK,UNK
     Route: 065
  4. ETHAMBUTOL [Suspect]
     Active Substance: ETHAMBUTOL HYDROCHLORIDE
     Indication: TUBERCULOSIS
     Dosage: UNK UNK,UNK
     Route: 065
  5. PYRAZINAMIDE. [Suspect]
     Active Substance: PYRAZINAMIDE
     Indication: TUBERCULOSIS
     Dosage: UNK UNK,UNK
     Route: 065
  6. LEVOFLOXACIN. [Suspect]
     Active Substance: LEVOFLOXACIN
     Dosage: 500 MG
     Route: 065
  7. TOLPERISONE [Concomitant]
     Active Substance: TOLPERISONE
     Indication: NECK PAIN
     Dosage: 50 MG,UNK
     Route: 065
  8. CIPROFLOXACIN. [Concomitant]
     Active Substance: CIPROFLOXACIN
     Dosage: UNK UNK,UNK
     Route: 065
  9. STREPTOMYCIN [Concomitant]
     Active Substance: STREPTOMYCIN\STREPTOMYCIN SULFATE
     Dosage: 125 MG,UNK
     Route: 065
  10. ACECLOFENAC [Concomitant]
     Active Substance: ACECLOFENAC
     Dosage: UNK UNK,UNK
     Route: 065
  11. LEVOFLOXACIN. [Suspect]
     Active Substance: LEVOFLOXACIN
     Dosage: 100 MG, QD
  12. STREPTOMYCIN [Concomitant]
     Active Substance: STREPTOMYCIN\STREPTOMYCIN SULFATE
     Dosage: 500 MG,UNK
     Route: 065
  13. ISONIAZID. [Suspect]
     Active Substance: ISONIAZID
     Indication: TUBERCULOSIS
     Dosage: UNK UNK,UNK
     Route: 065
  14. OFLOXACIN. [Concomitant]
     Active Substance: OFLOXACIN
     Dosage: UNK UNK,UNK
     Route: 065

REACTIONS (18)
  - Ocular icterus [Fatal]
  - Blood bilirubin increased [Fatal]
  - White blood cell count increased [Fatal]
  - Erythema [Fatal]
  - Blood alkaline phosphatase increased [Fatal]
  - Aspartate aminotransferase increased [Fatal]
  - Toxic epidermal necrolysis [Fatal]
  - Condition aggravated [Unknown]
  - Angular cheilitis [Fatal]
  - Alanine aminotransferase increased [Fatal]
  - Oedema peripheral [Fatal]
  - Cardio-respiratory arrest [Fatal]
  - Skin exfoliation [Fatal]
  - Rash [Fatal]
  - Drug-induced liver injury [Fatal]
  - Rash maculo-papular [Fatal]
  - Pruritus generalised [Fatal]
  - Dermatitis bullous [Fatal]
